FAERS Safety Report 25499866 (Version 1)
Quarter: 2025Q3

REPORT INFORMATION
  Report Type: Report from Study
  Country: EU (occurrence: EU)
  Receive Date: 20250701
  Receipt Date: 20250701
  Transmission Date: 20251021
  Serious: Yes (Death, Life-Threatening, Hospitalization, Disabling, Other)
  Sender: ABBVIE
  Company Number: EU-ABBVIE-6349443

PATIENT
  Age: 77 Year
  Sex: Female

DRUGS (7)
  1. VENETOCLAX [Suspect]
     Active Substance: VENETOCLAX
     Indication: Chronic lymphocytic leukaemia
     Route: 048
     Dates: start: 20191202, end: 20210421
  2. BISOPROLOL [Concomitant]
     Active Substance: BISOPROLOL
     Indication: Product used for unknown indication
     Route: 048
     Dates: start: 2010, end: 20210427
  3. FUROSEMIDE [Concomitant]
     Active Substance: FUROSEMIDE
     Indication: Atrial fibrillation
     Route: 048
     Dates: start: 2010, end: 20210427
  4. RIVAROXABAN [Concomitant]
     Active Substance: RIVAROXABAN
     Indication: Atrial fibrillation
     Route: 048
     Dates: start: 2010, end: 20210427
  5. RABEPRAZOLE [Concomitant]
     Active Substance: RABEPRAZOLE
     Indication: Gastrointestinal disorder prophylaxis
     Route: 048
     Dates: start: 2017, end: 20210427
  6. ALLOPURINOL [Concomitant]
     Active Substance: ALLOPURINOL
     Indication: Hyperuricaemia
     Route: 048
     Dates: start: 20191203, end: 20210427
  7. IBRUTINIB [Concomitant]
     Active Substance: IBRUTINIB
     Indication: Chronic lymphocytic leukaemia
     Route: 048
     Dates: start: 20180207, end: 20191203

REACTIONS (7)
  - Pyrexia [Fatal]
  - Sepsis [Fatal]
  - Anaemia [Not Recovered/Not Resolved]
  - Disease progression [Fatal]
  - Dyspnoea [Unknown]
  - Thrombocytopenia [Fatal]
  - Hyperuricaemia [Unknown]

NARRATIVE: CASE EVENT DATE: 20210419
